FAERS Safety Report 9063057 (Version 1)
Quarter: 2013Q1

REPORT INFORMATION
  Report Type: Spontaneous
  Country: US (occurrence: US)
  Receive Date: 20130213
  Receipt Date: 20130213
  Transmission Date: 20140127
  Serious: Yes (Hospitalization)
  Sender: FDA-Public Use
  Company Number: US-JNJFOC-20130200730

PATIENT
  Sex: Male

DRUGS (8)
  1. ZYTIGA [Suspect]
     Indication: PROSTATE CANCER
     Route: 048
  2. SIMVASTATIN [Concomitant]
     Route: 065
  3. ASPIRIN [Concomitant]
     Dosage: LOW DOSE
     Route: 065
  4. PLAVIX [Concomitant]
     Route: 065
  5. LOPRESSOR [Concomitant]
     Route: 065
  6. DOFETILIDE [Concomitant]
     Route: 065
  7. FLOMAX [Concomitant]
     Route: 065
  8. PREDNISONE [Concomitant]
     Route: 065

REACTIONS (1)
  - Stent placement [Unknown]
